FAERS Safety Report 6266444-0 (Version None)
Quarter: 2009Q3

REPORT INFORMATION
  Report Type: 
  Country: None (occurrence: None)
  Receive Date: 20090709
  Receipt Date: 20090630
  Transmission Date: 20100115
  Serious: Yes (Hospitalization)
  Sender: FDA-Public Use
  Company Number: SPV1-2009-01380

PATIENT
  Age: 28 Year
  Sex: Male

DRUGS (1)
  1. ELAPRASE [Suspect]
     Indication: MUCOPOLYSACCHARIDOSIS II
     Dosage: 0.5MG/KG, 1X2/WKS, IV DRIP
     Route: 041
     Dates: start: 20060101

REACTIONS (3)
  - BRONCHITIS [None]
  - OXYGEN SATURATION DECREASED [None]
  - PALPITATIONS [None]
